FAERS Safety Report 6591055-7 (Version None)
Quarter: 2010Q1

REPORT INFORMATION
  Report Type: 
  Country: None (occurrence: None)
  Receive Date: 20100212
  Receipt Date: 20100126
  Transmission Date: 20100710
  Serious: Yes (Hospitalization)
  Sender: FDA-Public Use
  Company Number: 237995K09USA

PATIENT
  Age: 58 Year
  Sex: Male

DRUGS (1)
  1. REBIF [Suspect]
     Indication: MULTIPLE SCLEROSIS
     Dosage: 44 MCG, 3 IN 1 WEEKS,  SUBCUTANEOUS
     Route: 058
     Dates: start: 20060517, end: 20091110

REACTIONS (5)
  - CONDITION AGGRAVATED [None]
  - GASTROINTESTINAL MOTILITY DISORDER [None]
  - MULTIPLE SCLEROSIS [None]
  - URINARY RETENTION [None]
  - URINARY TRACT INFECTION [None]
